FAERS Safety Report 8478672 (Version 5)
Quarter: 2012Q4

REPORT INFORMATION
  Report Type: 
  Country: US (occurrence: US)
  Receive Date: 20120327
  Receipt Date: 20120904
  Transmission Date: 20130627
  Serious: Yes (Disabling)
  Sender: FDA-Public Use
  Company Number: US-PFIZER INC-2012073682

PATIENT
  Age: 56 Year
  Sex: Male
  Weight: 88.9 kg

DRUGS (10)
  1. EFFEXOR XR [Suspect]
     Indication: DEPRESSION
     Dosage: 150 mg, 3x/day
     Dates: start: 1990, end: 201205
  2. EFFEXOR XR [Suspect]
     Indication: ANXIETY
  3. ZOLOFT [Suspect]
     Indication: DEPRESSION
     Dosage: 200 mg, daily
     Dates: end: 201205
  4. ZOLOFT [Suspect]
     Indication: ANXIETY
  5. VENLAFAXINE HYDROCHLORIDE [Suspect]
     Indication: DEPRESSION
     Dosage: 150 mg, 3x/day
     Route: 048
     Dates: start: 201205
  6. VENLAFAXINE HYDROCHLORIDE [Suspect]
     Indication: ANXIETY
  7. SERTRALINE [Suspect]
     Indication: DEPRESSION
     Dosage: 100 mg, 2x/day
     Route: 048
     Dates: start: 201205
  8. SERTRALINE [Suspect]
     Indication: ANXIETY
  9. WELLBUTRIN XL [Concomitant]
     Indication: DEPRESSION
     Dosage: UNK
  10. KLONOPIN [Concomitant]
     Indication: DEPRESSION
     Dosage: UNK

REACTIONS (3)
  - Accident at work [Unknown]
  - Back injury [Unknown]
  - Drug ineffective [Unknown]
